FAERS Safety Report 18108510 (Version 1)
Quarter: 2020Q3

REPORT INFORMATION
  Report Type: Report from Study
  Country: GB (occurrence: GB)
  Receive Date: 20200804
  Receipt Date: 20200804
  Transmission Date: 20201103
  Serious: Yes (Hospitalization)
  Sender: FDA-Public Use
  Company Number: GB-JNJFOC-20200723770

PATIENT
  Sex: Male

DRUGS (13)
  1. STELARA [Suspect]
     Active Substance: USTEKINUMAB
     Indication: CROHN^S DISEASE
     Route: 058
     Dates: start: 20180523
  2. STELARA [Suspect]
     Active Substance: USTEKINUMAB
  3. FOLIC ACID. [Concomitant]
     Active Substance: FOLIC ACID
  4. COLESEVELAM [Concomitant]
     Active Substance: COLESEVELAM
  5. ALFACALCIDOL [Concomitant]
     Active Substance: ALFACALCIDOL
  6. HYOSCINE BUTYLBROMIDE [Concomitant]
     Active Substance: BUTYLSCOPOLAMINE BROMIDE
  7. OMEPRAZOLE. [Concomitant]
     Active Substance: OMEPRAZOLE
  8. MIRABEGRON [Concomitant]
     Active Substance: MIRABEGRON
  9. ASPRIN [Concomitant]
     Active Substance: ASPIRIN
  10. AMLODIPINE [Concomitant]
     Active Substance: AMLODIPINE BESYLATE
  11. SODIUM BICARBONATE. [Concomitant]
     Active Substance: SODIUM BICARBONATE
  12. PARACETAMOL [Concomitant]
     Active Substance: ACETAMINOPHEN
  13. FENTANYL. [Concomitant]
     Active Substance: FENTANYL

REACTIONS (4)
  - Dialysis [Unknown]
  - Urosepsis [Unknown]
  - Infection [Unknown]
  - Fistula [Unknown]

NARRATIVE: CASE EVENT DATE: 20200715
